FAERS Safety Report 4705900-0 (Version None)
Quarter: 2005Q2

REPORT INFORMATION
  Report Type: 
  Country: None (occurrence: None)
  Receive Date: 20050629
  Receipt Date: 20050603
  Transmission Date: 20051028
  Serious: Yes (Hospitalization)
  Sender: FDA-Public Use
  Company Number: 2004221672NL

PATIENT
  Age: 52 Year
  Sex: Female

DRUGS (1)
  1. CELEBREX [Suspect]
     Indication: ILL-DEFINED DISORDER
     Dosage: 100 MG (2 IN 1 D), ORAL
     Route: 048
     Dates: start: 20000101

REACTIONS (1)
  - PYELONEPHRITIS [None]
